FAERS Safety Report 6583493-3 (Version None)
Quarter: 2010Q1

REPORT INFORMATION
  Report Type: 
  Country: None (occurrence: None)
  Receive Date: 20100216
  Receipt Date: 20100203
  Transmission Date: 20100710
  Serious: Yes (Hospitalization)
  Sender: FDA-Public Use
  Company Number: PHHY2010FR06882

PATIENT
  Age: 78 Year
  Sex: Female

DRUGS (10)
  1. VOLTAREN [Suspect]
     Indication: ARTHRALGIA
     Dosage: UNK
     Dates: start: 20091211, end: 20091211
  2. AMAREL [Suspect]
     Indication: TYPE 2 DIABETES MELLITUS
  3. GLUCOPHAGE [Suspect]
     Indication: TYPE 2 DIABETES MELLITUS
  4. ALLOPURINOL [Suspect]
     Indication: GOUT
     Dosage: UNK
     Dates: start: 20091115, end: 20091208
  5. COLCHICINE [Suspect]
     Indication: GOUT
     Dosage: UNK
     Dates: start: 20091208, end: 20091208
  6. NEURONTIN [Concomitant]
  7. BUFLOMEDIL [Concomitant]
  8. LASILIX [Concomitant]
  9. CELECTOL [Concomitant]
  10. APROVEL [Concomitant]

REACTIONS (13)
  - ALANINE AMINOTRANSFERASE INCREASED [None]
  - BLOOD ALKALINE PHOSPHATASE INCREASED [None]
  - BLOOD CREATININE [None]
  - CHEILITIS [None]
  - CHOLESTASIS [None]
  - CYTOLYTIC HEPATITIS [None]
  - DRUG RASH WITH EOSINOPHILIA AND SYSTEMIC SYMPTOMS [None]
  - GAMMA-GLUTAMYLTRANSFERASE [None]
  - MUCOSAL INFLAMMATION [None]
  - PRURITUS [None]
  - PYREXIA [None]
  - RASH MACULO-PAPULAR [None]
  - RENAL FAILURE [None]
